FAERS Safety Report 16767875 (Version 5)
Quarter: 2021Q1

REPORT INFORMATION
  Report Type: Spontaneous
  Country: JP (occurrence: JP)
  Receive Date: 20190903
  Receipt Date: 20210122
  Transmission Date: 20210419
  Serious: Yes (Death, Other)
  Sender: FDA-Public Use
  Company Number: JP-EISAI MEDICAL RESEARCH-EC-2019-061538

PATIENT
  Sex: Male
  Weight: 70 kg

DRUGS (4)
  1. LENVIMA [Suspect]
     Active Substance: LENVATINIB
     Indication: HEPATOCELLULAR CARCINOMA
     Route: 048
     Dates: start: 20190730, end: 20190819
  2. LEVOTHYROXINE SODIUM HYDRATE [Concomitant]
     Active Substance: LEVOTHYROXINE SODIUM
     Indication: PRODUCT USED FOR UNKNOWN INDICATION
     Dosage: DOSE AND FREQUENCY UNKNOWN
     Route: 048
  3. LENVIMA [Suspect]
     Active Substance: LENVATINIB
     Route: 048
     Dates: start: 20190821, end: 20190826
  4. LACTULOSE. [Concomitant]
     Active Substance: LACTULOSE
     Indication: HYPERAMMONAEMIA
     Dosage: DOSE AND FREQUENCY UNKNOWN
     Route: 048

REACTIONS (9)
  - Hypothyroidism [Unknown]
  - Diarrhoea [Unknown]
  - Gastrointestinal necrosis [Fatal]
  - Hypertension [Unknown]
  - Renal impairment [Unknown]
  - Decreased appetite [Not Recovered/Not Resolved]
  - Gastrointestinal perforation [Fatal]
  - Hepatic encephalopathy [Unknown]
  - Hyperammonaemia [Unknown]

NARRATIVE: CASE EVENT DATE: 201908
